FAERS Safety Report 14075763 (Version 1)
Quarter: 2017Q4

REPORT INFORMATION
  Report Type: Report from Study
  Country: CO (occurrence: CO)
  Receive Date: 20171011
  Receipt Date: 20171011
  Transmission Date: 20180321
  Serious: Yes (Hospitalization, Other)
  Sender: FDA-Public Use
  Company Number: CO-AMGEN-COLSL2017152607

PATIENT
  Age: 38 Year
  Sex: Male

DRUGS (1)
  1. NPLATE [Suspect]
     Active Substance: ROMIPLOSTIM
     Indication: IMMUNE THROMBOCYTOPENIC PURPURA
     Dosage: 640 MUG, QWK
     Route: 058
     Dates: start: 20140923

REACTIONS (2)
  - Thrombocytopenia [Recovered/Resolved]
  - Hospitalisation [Not Recovered/Not Resolved]
